FAERS Safety Report 8124496-7 (Version None)
Quarter: 2012Q1

REPORT INFORMATION
  Report Type: 
  Country: None (occurrence: None)
  Receive Date: 20120209
  Receipt Date: 20120130
  Transmission Date: 20120608
  Serious: Yes (Other)
  Sender: FDA-Public Use
  Company Number: US-ELI_LILLY_AND_COMPANY-US201108001790

PATIENT
  Sex: Female
  Weight: 152 kg

DRUGS (4)
  1. FORTEO [Suspect]
     Dosage: 20 UG, QD
     Route: 058
  2. FORTEO [Suspect]
     Indication: OSTEOPOROSIS
     Dosage: 20 UG, QD
     Route: 058
  3. NSAID'S [Concomitant]
  4. FORTEO [Suspect]
     Dosage: 20 UG, QD
     Route: 058

REACTIONS (6)
  - RENAL IMPAIRMENT [None]
  - BACK PAIN [None]
  - SYNCOPE [None]
  - PAIN IN EXTREMITY [None]
  - COLITIS [None]
  - ARTHRITIS [None]
